FAERS Safety Report 8376018-3 (Version None)
Quarter: 2012Q2

REPORT INFORMATION
  Report Type: 
  Country: None (occurrence: None)
  Receive Date: 20120522
  Receipt Date: 20120514
  Transmission Date: 20120825
  Serious: Yes (Other)
  Sender: FDA-Public Use
  Company Number: PHHY2012BR042295

PATIENT
  Sex: Female
  Weight: 73 kg

DRUGS (6)
  1. BETASERC [Concomitant]
     Indication: DIZZINESS
     Dosage: 1 DF, A DAY
     Route: 048
  2. CLONAZEPAM [Concomitant]
     Indication: INSOMNIA
     Dosage: 0.25 MG, AT NIGHT
     Route: 048
  3. SIMVASTATIN [Concomitant]
     Indication: BLOOD CHOLESTEROL INCREASED
     Dosage: 1 DF, AT NIGHT
     Route: 048
  4. PHENYTOIN [Concomitant]
     Indication: CONVULSION
     Route: 042
  5. TRILEPTAL [Suspect]
     Indication: CONVULSION
     Dosage: 2 DF, (1 TABLET IN THE MORNING AND 1 TABLET AT NIGHT)
     Route: 048
  6. TRILEPTAL [Suspect]
     Dosage: 2 DF, (1 TABLET IN THE MORNING AND 1 TABLET AT NIGHT)
     Route: 048

REACTIONS (3)
  - CONVULSION [None]
  - SCIATICA [None]
  - HEADACHE [None]
